FAERS Safety Report 5822787-3 (Version None)
Quarter: 2008Q3

REPORT INFORMATION
  Report Type: 
  Country: None (occurrence: None)
  Receive Date: 20080725
  Receipt Date: 20080717
  Transmission Date: 20090109
  Serious: Yes (Death)
  Sender: FDA-Public Use
  Company Number: CH-AVENTIS-200816962GDDC

PATIENT
  Age: 84 Year
  Sex: Female

DRUGS (1)
  1. TAXOTERE [Suspect]
     Indication: PERITONEAL CARCINOMA
     Dosage: DOSE: UNK
     Route: 042
     Dates: start: 20070518, end: 20071026

REACTIONS (1)
  - ACUTE RESPIRATORY DISTRESS SYNDROME [None]
